FAERS Safety Report 18940409 (Version 3)
Quarter: 2021Q3

REPORT INFORMATION
  Report Type: Spontaneous
  Country: US (occurrence: US)
  Receive Date: 20210225
  Receipt Date: 20210901
  Transmission Date: 20211014
  Serious: No
  Sender: FDA-Public Use
  Company Number: US-SA-2021SA060642

PATIENT
  Age: 61 Year
  Sex: Female

DRUGS (3)
  1. ASPIRIN [ACETYLSALICYLIC ACID] [Concomitant]
     Active Substance: ASPIRIN
  2. CLOPIDOGREL [Concomitant]
     Active Substance: CLOPIDOGREL BISULFATE
  3. DUPIXENT [Suspect]
     Active Substance: DUPILUMAB
     Indication: ASTHMA
     Dosage: 300 MG, QOW
     Route: 058
     Dates: start: 20210126

REACTIONS (7)
  - Pain [Recovering/Resolving]
  - SARS-CoV-2 test positive [Recovering/Resolving]
  - Contusion [Recovering/Resolving]
  - Swelling [Recovering/Resolving]
  - Vein disorder [Recovering/Resolving]
  - Product use issue [Unknown]
  - COVID-19 [Recovering/Resolving]

NARRATIVE: CASE EVENT DATE: 20210126
